FAERS Safety Report 9176640 (Version 1)
Quarter: 2013Q1

REPORT INFORMATION
  Report Type: Spontaneous
  Country: IN (occurrence: None)
  Receive Date: 20130319
  Receipt Date: 20130319
  Transmission Date: 20140127
  Serious: Yes (Hospitalization)
  Sender: FDA-Public Use
  Company Number: UCM201303-000017

PATIENT
  Age: 15 Year
  Sex: Male
  Weight: 30 kg

DRUGS (3)
  1. DIVALPROEX SODIUM [Suspect]
     Dosage: 2400 MG (80,G/KG) DAILY
  2. PHENYTOIN [Suspect]
     Dosage: 7 MG/KG DAILY.
  3. CLONAZEPAM [Concomitant]

REACTIONS (6)
  - Fall [None]
  - Muscle haemorrhage [None]
  - Haematotoxicity [None]
  - Anaemia [None]
  - Coagulopathy [None]
  - Eye swelling [None]
